FAERS Safety Report 8718131 (Version 5)
Quarter: 2013Q1

REPORT INFORMATION
  Report Type: Report from Study
  Country: CA (occurrence: CA)
  Receive Date: 20120810
  Receipt Date: 20130125
  Transmission Date: 20140127
  Serious: Yes (Hospitalization)
  Sender: FDA-Public Use
  Company Number: CA-BRISTOL-MYERS SQUIBB COMPANY-16842254

PATIENT
  Age: 54 Year
  Sex: Male
  Weight: 70 kg

DRUGS (5)
  1. CARBOPLATIN [Suspect]
     Dosage: 1 DF=AUC 5,23MAY-13JUN12,MOST RECENT DOSE:30JUL12,1AUG12
     Dates: start: 20120523
  2. PACLITAXEL [Suspect]
     Dosage: MOST RECENT DOSE ON 1AUG12
     Dates: start: 20120730
  3. DILAUDID [Concomitant]
     Indication: PAIN
     Dates: start: 20120403
  4. PROCHLORPERAZINE [Concomitant]
     Indication: NAUSEA
     Dates: start: 20120411
  5. ATIVAN [Concomitant]
     Indication: INSOMNIA
     Dates: start: 20120309

REACTIONS (2)
  - Asthenia [Recovering/Resolving]
  - Hypotension [Recovered/Resolved]
